FAERS Safety Report 23266648 (Version 2)
Quarter: 2023Q4

REPORT INFORMATION
  Report Type: Spontaneous
  Country: US (occurrence: US)
  Receive Date: 20231206
  Receipt Date: 20231212
  Transmission Date: 20240109
  Serious: Yes (Other)
  Sender: FDA-Public Use
  Company Number: US-BAYER-2023A173278

PATIENT
  Age: 43 Year
  Sex: Female

DRUGS (1)
  1. MIRENA [Suspect]
     Active Substance: LEVONORGESTREL
     Dosage: 20?G/DAY
     Route: 015
     Dates: start: 20150801, end: 20230728

REACTIONS (4)
  - Device breakage [None]
  - Complication of device removal [None]
  - Device issue [None]
  - Device use issue [None]

NARRATIVE: CASE EVENT DATE: 20230728
